FAERS Safety Report 8815133 (Version 2)
Quarter: 2013Q4

REPORT INFORMATION
  Report Type: Report from Study
  Country: CA (occurrence: CA)
  Receive Date: 20120928
  Receipt Date: 20131016
  Transmission Date: 20140711
  Serious: Yes (Other)
  Sender: FDA-Public Use
  Company Number: CA-JNJFOC-20120908701

PATIENT
  Age: 64 Year
  Sex: Male
  Weight: 74 kg

DRUGS (26)
  1. REMICADE [Suspect]
     Indication: ANKYLOSING SPONDYLITIS
     Dosage: DOSE: ALSO REPORTED AS 360 MG
     Route: 042
     Dates: start: 20111102
  2. REMICADE [Suspect]
     Indication: RHEUMATOID ARTHRITIS
     Dosage: DOSE: ALSO REPORTED AS 360 MG
     Route: 042
     Dates: start: 20111102
  3. SPIRIVA [Concomitant]
     Route: 065
  4. ADVAIR [Concomitant]
     Route: 065
  5. FERROUS SULFATE [Concomitant]
     Route: 048
  6. HYDROMORPHONE [Concomitant]
     Route: 048
  7. ZYLOPRIM [Concomitant]
     Route: 048
  8. LEUCOVORIN CALCIUM [Concomitant]
     Route: 048
  9. ALENDRONATE [Concomitant]
     Route: 048
  10. ZOPICLONE [Concomitant]
     Route: 048
  11. CLOPIDOGREL [Concomitant]
     Route: 065
  12. VENTOLIN [Concomitant]
     Route: 065
  13. ONE ALPHA [Concomitant]
     Route: 048
  14. PREDNISONE [Concomitant]
     Route: 048
  15. ACETYLSALICYLIC ACID [Concomitant]
     Route: 048
  16. ISOSORBIDE-5-MONONITRATE [Concomitant]
     Route: 048
  17. SYNTHROID [Concomitant]
     Route: 048
  18. TRANDATE [Concomitant]
     Route: 048
  19. METHOTREXATE [Concomitant]
     Route: 048
  20. ELAVIL [Concomitant]
     Route: 048
  21. FUROSEMIDE [Concomitant]
     Route: 048
  22. HYDRALAZINE [Concomitant]
     Route: 048
  23. ROSUVASTATIN CALCIUM [Concomitant]
     Route: 048
  24. HYDROMORPH CONTIN [Concomitant]
     Route: 048
  25. HYDROMORPH CONTIN [Concomitant]
     Route: 048
  26. LANSOPRAZOLE [Concomitant]
     Route: 048

REACTIONS (2)
  - Blood test abnormal [Not Recovered/Not Resolved]
  - Arthralgia [Not Recovered/Not Resolved]
